FAERS Safety Report 14425862 (Version 1)
Quarter: 2018Q1

REPORT INFORMATION
  Report Type: Spontaneous
  Country: US (occurrence: US)
  Receive Date: 20180123
  Receipt Date: 20180123
  Transmission Date: 20180509
  Serious: No
  Sender: FDA-Public Use
  Company Number: None

PATIENT
  Age: 71 Year
  Sex: Female
  Weight: 55.34 kg

DRUGS (7)
  1. MYCOPHENOLATE SODIUM [Suspect]
     Active Substance: MYCOPHENOLATE SODIUM
     Indication: RENAL TRANSPLANT
     Dosage: 1 PILL TWICE DAILY TWICE DAILY MOUTH
     Route: 048
     Dates: start: 201604, end: 201712
  2. AZATHIOPRINE. [Concomitant]
     Active Substance: AZATHIOPRINE
  3. PROGRAF [Concomitant]
     Active Substance: TACROLIMUS\TACROLIMUS ANHYDROUS
  4. LEVOXYL [Concomitant]
     Active Substance: LEVOTHYROXINE SODIUM
  5. MULTIVITAMIN WOMEN COMPLETE 50+ [Concomitant]
  6. MYFORTIC [Concomitant]
     Active Substance: MYCOPHENOLATE SODIUM
  7. TACROLIMUS. [Concomitant]
     Active Substance: TACROLIMUS

REACTIONS (10)
  - Dizziness [None]
  - Alopecia [None]
  - Neck pain [None]
  - Pruritus [None]
  - Hallucination [None]
  - Headache [None]
  - Rash erythematous [None]
  - Insomnia [None]
  - Back pain [None]
  - Screaming [None]

NARRATIVE: CASE EVENT DATE: 20170924
